FAERS Safety Report 5011581-1 (Version None)
Quarter: 2006Q2

REPORT INFORMATION
  Report Type: 
  Country: None (occurrence: None)
  Receive Date: 20060524
  Receipt Date: 20060518
  Transmission Date: 20061013
  Serious: Yes (Death)
  Sender: FDA-Public Use
  Company Number: 430025M06USA

PATIENT
  Age: 57 Year
  Sex: Male
  Weight: 111.1 kg

DRUGS (29)
  1. NOVANTRONE [Suspect]
     Indication: ACUTE MYELOID LEUKAEMIA
     Dosage: 1.8 G, 1 IN 1 DAYS, INTRAVENOUS
     Route: 042
     Dates: start: 20060310, end: 20060315
  2. NOVANTRONE [Suspect]
     Indication: ACUTE MYELOID LEUKAEMIA
     Dosage: 1.8 G, 1 IN 1 DAYS, INTRAVENOUS
     Route: 042
     Dates: start: 20060331, end: 20060404
  3. CEP -701 (INVESTIGATIONAL DRUG) [Suspect]
     Dosage: 80 MG, 2 IN 1 DAYS, ORAL
     Route: 048
     Dates: start: 20060317, end: 20060424
  4. ETOPOSIDE [Suspect]
     Dosage: 23 G, 1 IN 1 DAYS, INTRAVENOUS
     Route: 042
     Dates: start: 20060310, end: 20060315
  5. ETOPOSIDE [Suspect]
     Dosage: 23 G, 1 IN 1 DAYS, INTRAVENOUS
     Route: 042
     Dates: start: 20060331, end: 20060404
  6. CYTARABINE [Suspect]
     Dosage: 2.3 G, 1 IN 1 DAYS, INTRAVENOUS
     Route: 042
     Dates: start: 20060310, end: 20060315
  7. CYTARABINE [Suspect]
     Dosage: 2.3 G, 1 IN 1 DAYS, INTRAVENOUS
     Route: 042
     Dates: start: 20060331, end: 20060404
  8. ACETAMINOPHEN [Concomitant]
  9. ALLOPURINOL [Concomitant]
  10. ACYCLOVIR (ACICLOVIR /00587301/) [Concomitant]
  11. AZTREONAM (AZTREONAM) [Concomitant]
  12. METRONIDAZOLE (METRONIDAZOLE /00012501/) [Concomitant]
  13. VANCOMYCIN (VANCOMYCIN /00314401/) [Concomitant]
  14. AMILALIN (AMPICILLIN TRIHYDRATE) [Concomitant]
  15. AMPHOTERICIN B [Concomitant]
  16. AZITHROMYCIN [Concomitant]
  17. CASPOFUNGIN (CASPOFUNGIN) [Concomitant]
  18. LINEZOLID [Concomitant]
  19. STREPTOMYCIN (STREPTOMYCIN /00051001/) [Concomitant]
  20. NYSTATIN [Concomitant]
  21. CIPROFLOXACIN (CIPROFLOXACIN /00697201/) [Concomitant]
  22. NEUPOGEN [Concomitant]
  23. DIPHENHYDRAMINE HCL [Concomitant]
  24. ESOMEPRAZOLE (ESOMEPRAZOLE) [Concomitant]
  25. FUROSEMIDE (FUROSEMIDE /00032601/) [Concomitant]
  26. HYDROCHLOROTHIAZIDE [Concomitant]
  27. ASPIRIN [Concomitant]
  28. LOPEARMIDE (LOPEARMIDE /00384301/) [Concomitant]
  29. VITAMIN SUPPLEMENTS (VITAMINS) [Concomitant]

REACTIONS (2)
  - PANCYTOPENIA [None]
  - SEPTIC SHOCK [None]
